FAERS Safety Report 19783430 (Version 1)
Quarter: 2021Q3

REPORT INFORMATION
  Report Type: Report from Study
  Country: US (occurrence: US)
  Receive Date: 20210902
  Receipt Date: 20210902
  Transmission Date: 20211014
  Serious: Yes (Other)
  Sender: FDA-Public Use
  Company Number: US-REGENERON PHARMACEUTICALS, INC.-2021-80717

PATIENT

DRUGS (1)
  1. CASIRIVIMAB AND IMDEVIMAB [Suspect]
     Active Substance: CASIRIVIMAB\IMDEVIMAB
     Indication: COVID-19
     Dosage: STRENGTH: 600/600 MG
     Route: 042

REACTIONS (5)
  - Pallor [Unknown]
  - Confusional state [Unknown]
  - Hyperhidrosis [Unknown]
  - Seizure [Unknown]
  - Bradycardia [Unknown]
